FAERS Safety Report 6299496-2 (Version None)
Quarter: 2009Q3

REPORT INFORMATION
  Report Type: 
  Country: None (occurrence: None)
  Receive Date: 20090806
  Receipt Date: 20090730
  Transmission Date: 20100115
  Serious: Yes (Death)
  Sender: FDA-Public Use
  Company Number: B0587385A

PATIENT

DRUGS (4)
  1. COMBIVIR [Suspect]
     Dates: start: 20070101
  2. KALETRA [Suspect]
     Dates: start: 20070101
  3. DOXYCYCLINE [Suspect]
     Indication: MALARIA
     Dosage: 100MG PER DAY
     Dates: start: 20080818, end: 20080916
  4. FOLIC ACID [Concomitant]

REACTIONS (3)
  - ABORTION [None]
  - DRUG EXPOSURE DURING PREGNANCY [None]
  - INTRA-UTERINE DEATH [None]
